FAERS Safety Report 9163061 (Version 1)
Quarter: 2013Q1

REPORT INFORMATION
  Report Type: Spontaneous
  Country: GB (occurrence: GB)
  Receive Date: 20130314
  Receipt Date: 20130314
  Transmission Date: 20140127
  Serious: Yes (Other)
  Sender: FDA-Public Use
  Company Number: GB-009507513-1301GBR011241

PATIENT
  Age: 38 Year
  Sex: Male
  Weight: 70 kg

DRUGS (6)
  1. VICTRELIS [Suspect]
     Indication: HEPATITIS C
     Dosage: UNK, TID
     Route: 048
     Dates: start: 20121217
  2. MIRTAZAPINE [Interacting]
     Indication: DEPRESSION
     Dosage: 45 MG DAILY
  3. MIRTAZAPINE [Interacting]
     Dosage: 15 MG DAILY
     Dates: end: 20130212
  4. DIAZEPAM [Interacting]
     Dosage: 40 MG, QD
  5. NITRAZEPAM [Interacting]
     Dosage: UNK UNK, QD
  6. OPIUM [Suspect]

REACTIONS (4)
  - Hyperhidrosis [Recovered/Resolved]
  - Tachycardia [Recovered/Resolved]
  - Drug interaction [Unknown]
  - Withdrawal syndrome [Recovered/Resolved]
